FAERS Safety Report 8913328 (Version 3)
Quarter: 2012Q4

REPORT INFORMATION
  Report Type: 
  Country: US (occurrence: US)
  Receive Date: 20121116
  Receipt Date: 20121221
  Transmission Date: 20130627
  Serious: Yes (Other)
  Sender: FDA-Public Use
  Company Number: US-PFIZER INC-2012285184

PATIENT
  Age: 60 Year
  Sex: Female
  Weight: 73 kg

DRUGS (12)
  1. ARICEPT [Suspect]
     Indication: MEMORY IMPAIRMENT
     Dosage: 10 mg, 1x/day
     Route: 048
  2. ZOLOFT [Suspect]
     Indication: DEPRESSION
     Dosage: 50 mg, 1x/day
     Route: 048
     Dates: start: 201110
  3. ZOLOFT [Suspect]
     Indication: MOOD DISORDER NOS
  4. AMPYRA [Suspect]
     Indication: PRODUCT USED FOR UNKNOWN INDICATION
     Dosage: 10 mg, 2x/day
     Route: 048
     Dates: start: 201006, end: 201008
  5. AMPYRA [Suspect]
     Dosage: 10 mg, 2x/day
     Route: 048
     Dates: start: 201009, end: 201202
  6. AMPYRA [Suspect]
     Dosage: 10 mg, 1x/day
     Route: 048
     Dates: start: 201202, end: 2012
  7. REBIF [Concomitant]
  8. BACLOFEN [Concomitant]
  9. NUVIGIL [Concomitant]
     Dosage: UNK
  10. NYSTATIN [Concomitant]
  11. SANCTURA XR [Concomitant]
     Dosage: UNK
  12. CANNABIS SATIVA SUBSP. INDICA TOP [Concomitant]
     Dosage: UNK

REACTIONS (36)
  - Fracture [Unknown]
  - Rotator cuff repair [Recovering/Resolving]
  - Personality change [Recovering/Resolving]
  - Anger [Recovering/Resolving]
  - Depression [Recovering/Resolving]
  - Apathy [Recovering/Resolving]
  - Agitation [Recovering/Resolving]
  - Fatigue [Not Recovered/Not Resolved]
  - Memory impairment [Unknown]
  - Muscle spasms [Recovered/Resolved]
  - Dysstasia [Not Recovered/Not Resolved]
  - Urinary tract infection [Unknown]
  - Dyspepsia [Recovered/Resolved]
  - Muscle twitching [Unknown]
  - Gait disturbance [Not Recovered/Not Resolved]
  - Muscular weakness [Not Recovered/Not Resolved]
  - Musculoskeletal pain [Not Recovered/Not Resolved]
  - Jaundice [Unknown]
  - Stress [Unknown]
  - Flatulence [Unknown]
  - Diarrhoea [Recovered/Resolved]
  - Weight increased [Not Recovered/Not Resolved]
  - Snoring [Unknown]
  - Vision blurred [Unknown]
  - Diplopia [Unknown]
  - Restless legs syndrome [Recovered/Resolved]
  - Night sweats [Unknown]
  - Chills [Unknown]
  - Hot flush [Unknown]
  - Alopecia [Unknown]
  - Urine odour abnormal [Unknown]
  - Dysuria [Unknown]
  - Balance disorder [Not Recovered/Not Resolved]
  - Drug ineffective [Unknown]
  - White blood cell count increased [Recovered/Resolved]
  - Memory impairment [Recovered/Resolved]
